FAERS Safety Report 4632759-2 (Version None)
Quarter: 2005Q2

REPORT INFORMATION
  Report Type: 
  Country: None (occurrence: None)
  Receive Date: 20050408
  Receipt Date: 20050408
  Transmission Date: 20051028
  Serious: Yes (Other)
  Sender: FDA-Public Use
  Company Number: None

PATIENT
  Sex: Male
  Weight: 90.7194 kg

DRUGS (2)
  1. ENBREL [Suspect]
     Indication: PSORIASIS
     Dosage: 50 MG TWICE WEEKLY SUBCUTANEOUS
     Route: 058
     Dates: start: 20041022, end: 20050406
  2. ASULFADINE [Concomitant]

REACTIONS (2)
  - COLITIS ULCERATIVE [None]
  - CONDITION AGGRAVATED [None]
